FAERS Safety Report 25496957 (Version 2)
Quarter: 2025Q3

REPORT INFORMATION
  Report Type: Spontaneous
  Country: EU (occurrence: EU)
  Receive Date: 20250701
  Receipt Date: 20250912
  Transmission Date: 20251020
  Serious: Yes (Other)
  Sender: RANBAXY
  Company Number: EU-AMGEN-DEUNI2017044739

PATIENT
  Sex: Male
  Weight: 78 kg

DRUGS (25)
  1. LENALIDOMIDE [Suspect]
     Active Substance: LENALIDOMIDE
     Indication: Plasma cell myeloma
     Route: 065
     Dates: start: 20161108, end: 20170612
  2. CARFILZOMIB [Suspect]
     Active Substance: CARFILZOMIB
     Indication: Plasma cell myeloma
     Route: 040
     Dates: start: 20161107, end: 20161108
  3. CARFILZOMIB [Suspect]
     Active Substance: CARFILZOMIB
     Route: 065
     Dates: start: 20161114, end: 20170307
  4. CARFILZOMIB [Suspect]
     Active Substance: CARFILZOMIB
     Route: 065
     Dates: start: 20170327, end: 20170524
  5. DEXAMETHASONE [Suspect]
     Active Substance: DEXAMETHASONE
     Indication: Plasma cell myeloma
     Route: 065
     Dates: start: 20161107, end: 20170213
  6. DEXAMETHASONE [Suspect]
     Active Substance: DEXAMETHASONE
     Route: 065
     Dates: start: 20170220, end: 20170220
  7. DEXAMETHASONE [Suspect]
     Active Substance: DEXAMETHASONE
     Route: 065
     Dates: start: 20170227, end: 20170613
  8. XGEVA [Concomitant]
     Active Substance: DENOSUMAB
     Indication: Prophylaxis
     Dosage: 120 MILLIGRAM, QMO (MONTHLY)
     Route: 065
     Dates: start: 20180111
  9. BUDESONIDE [Concomitant]
     Active Substance: BUDESONIDE
     Indication: Chronic obstructive pulmonary disease
     Dosage: 0.4 MILLIGRAM, BID (TWICE PER DAY)
     Route: 065
  10. Cyclocaps salbutamol [Concomitant]
     Indication: Chronic obstructive pulmonary disease
     Dosage: 200 MILLIGRAM, QD (DAILY)
     Route: 065
  11. VITAMIN B12 [Concomitant]
     Active Substance: CYANOCOBALAMIN
     Indication: Product used for unknown indication
     Dosage: 1000 MILLIGRAM, QMO (MONTHLY)
     Route: 065
     Dates: start: 2015
  12. PANTOPRAZOLE SODIUM [Concomitant]
     Active Substance: PANTOPRAZOLE SODIUM
     Indication: Prophylaxis
     Dosage: 40 MILLIGRAM, QD (DAILY)
     Route: 065
     Dates: start: 201504
  13. RANEXA [Concomitant]
     Active Substance: RANOLAZINE
     Indication: Coronary artery disease
     Dosage: 375 MILLIGRAM, BID (TWICE PER DAY)
     Route: 065
     Dates: start: 201504, end: 20210324
  14. PAMIDRONATE DISODIUM [Concomitant]
     Active Substance: PAMIDRONATE DISODIUM
     Indication: Prophylaxis
     Dosage: 60 MILLIGRAM, QMO (MONTHLY)
     Route: 065
     Dates: start: 20150522, end: 20171219
  15. ACYCLOVIR [Concomitant]
     Active Substance: ACYCLOVIR
     Indication: Prophylaxis
     Dosage: 200 MILLIGRAM, TID (THREE TIMES PER DAY)
     Route: 065
     Dates: start: 20161107
  16. Axigran [Concomitant]
     Indication: Prophylaxis
     Route: 065
     Dates: start: 20161107, end: 20201119
  17. ENOXAPARIN SODIUM [Concomitant]
     Active Substance: ENOXAPARIN SODIUM
     Indication: Prophylaxis
     Dosage: 40 MILLIGRAM, QD (DAILY)
     Route: 065
     Dates: start: 20161108, end: 20220824
  18. CALCIUM CARBONATE\CHOLECALCIFEROL [Concomitant]
     Active Substance: CALCIUM CARBONATE\CHOLECALCIFEROL
     Indication: Prophylaxis
     Dosage: 880 INTERNATIONAL UNIT, QD (DAILY)
     Route: 065
     Dates: start: 20170110
  19. ASPIRIN [Concomitant]
     Active Substance: ASPIRIN
     Indication: Prophylaxis
     Dosage: 100 MILLIGRAM, QD (DAILY)
     Route: 065
     Dates: start: 20200826
  20. Alfacalcidol Medice [Concomitant]
     Indication: Chronic kidney disease
     Dosage: 0.25 MICROGRAM, QD (DAILY)
     Route: 065
     Dates: start: 20211006
  21. TORSEMIDE [Concomitant]
     Active Substance: TORSEMIDE
     Indication: Chronic kidney disease
     Dosage: 5 MILLIGRAM, QD (DAILY)
     Route: 065
     Dates: start: 20171205
  22. FOLIC ACID [Concomitant]
     Active Substance: FOLIC ACID
     Indication: Prophylaxis
     Dosage: 5 MILLIGRAM, QD (DAILY)
     Route: 065
     Dates: start: 20170328
  23. PRIVIGEN [Concomitant]
     Active Substance: HUMAN IMMUNOGLOBULIN G
     Indication: Prophylaxis
     Dosage: 200 MILLIGRAM, QMO (MONTHLY)
     Route: 065
     Dates: start: 20200724
  24. OXYCODONE [Concomitant]
     Active Substance: OXYCODONE
     Indication: Product used for unknown indication
     Route: 065
     Dates: start: 20190409
  25. NALOXONE HYDROCHLORIDE [Concomitant]
     Active Substance: NALOXONE HYDROCHLORIDE
     Indication: Product used for unknown indication
     Route: 065
     Dates: start: 20190409

REACTIONS (3)
  - Thrombocytopenia [Recovered/Resolved]
  - Leukopenia [Recovered/Resolved]
  - Anaemia [Recovered/Resolved]

NARRATIVE: CASE EVENT DATE: 20170306
